FAERS Safety Report 7273783-3 (Version None)
Quarter: 2011Q1

REPORT INFORMATION
  Report Type: 
  Country: None (occurrence: None)
  Receive Date: 20110203
  Receipt Date: 20110131
  Transmission Date: 20110831
  Serious: Yes (Other)
  Sender: FDA-Public Use
  Company Number: JP-PFIZER INC-2011012491

PATIENT
  Age: 34 Year
  Sex: Male

DRUGS (11)
  1. MAGNESIUM OXIDE [Concomitant]
     Dosage: UNK
  2. LYRICA [Suspect]
     Dosage: UNK
     Dates: start: 20101222
  3. VEGETAMIN B [Concomitant]
     Dosage: UNK
  4. SILECE [Concomitant]
     Dosage: UNK
  5. GABAPENTIN [Concomitant]
     Dosage: UNK
  6. ZYPREXA [Concomitant]
     Dosage: UNK
  7. HIRNAMIN [Concomitant]
     Dosage: UNK
  8. QUAZEPAM [Concomitant]
     Dosage: UNK
  9. HALCION [Concomitant]
     Dosage: UNK
  10. RESLIN [Concomitant]
     Dosage: UNK
  11. AMOBAN [Concomitant]
     Dosage: UNK

REACTIONS (2)
  - FOLATE DEFICIENCY [None]
  - WEIGHT INCREASED [None]
